FAERS Safety Report 18393164 (Version 5)
Quarter: 2020Q4

REPORT INFORMATION
  Report Type: Spontaneous
  Country: US (occurrence: US)
  Receive Date: 20201016
  Receipt Date: 20201217
  Transmission Date: 20210114
  Serious: No
  Sender: FDA-Public Use
  Company Number: US-GLAXOSMITHKLINE-US2020AMR205387

PATIENT
  Sex: Female

DRUGS (2)
  1. ZEJULA [Suspect]
     Active Substance: NIRAPARIB
     Dosage: 200 MG, QD
  2. ZEJULA [Suspect]
     Active Substance: NIRAPARIB
     Indication: OVARIAN CANCER
     Dosage: 300 MG, QD
     Dates: start: 20200923

REACTIONS (6)
  - Platelet count decreased [Recovered/Resolved]
  - Flushing [Unknown]
  - Blood pressure increased [Recovered/Resolved]
  - Headache [Unknown]
  - Blood creatine increased [Recovered/Resolved]
  - Blood count abnormal [Not Recovered/Not Resolved]
